FAERS Safety Report 9705647 (Version 2)
Quarter: 2014Q2

REPORT INFORMATION
  Report Type: Report from Study
  Country: US (occurrence: US)
  Receive Date: 20131122
  Receipt Date: 20140529
  Transmission Date: 20141212
  Serious: Yes (Hospitalization, Other)
  Sender: FDA-Public Use
  Company Number: US-US-EMD SERONO, INC.-7251054

PATIENT
  Age: 17 Year
  Sex: Male
  Weight: 57 kg

DRUGS (14)
  1. SAIZEN [(SOMATROPIN (RDNA ORIGIN) FOR INJECTION)] [Suspect]
     Indication: GROWTH HORMONE DEFICIENCY
     Route: 058
     Dates: start: 20110921, end: 201204
  2. SAIZEN [(SOMATROPIN (RDNA ORIGIN) FOR INJECTION)] [Suspect]
     Indication: HYPOPITUITARISM
     Route: 058
     Dates: start: 201210
  3. SAIZEN [(SOMATROPIN (RDNA ORIGIN) FOR INJECTION)] [Suspect]
     Route: 058
     Dates: start: 20131226
  4. MYCIFRADIN [Concomitant]
     Indication: PRODUCT USED FOR UNKNOWN INDICATION
     Route: 048
  5. FLAGYL                             /00012501/ [Concomitant]
     Indication: PRODUCT USED FOR UNKNOWN INDICATION
  6. NYSTATIN [Concomitant]
     Indication: PRODUCT USED FOR UNKNOWN INDICATION
  7. CARBATROL [Concomitant]
     Indication: PRODUCT USED FOR UNKNOWN INDICATION
     Route: 048
  8. VITAMIN D                          /00107901/ [Concomitant]
     Indication: PRODUCT USED FOR UNKNOWN INDICATION
     Route: 048
  9. CORTEF                             /00028601/ [Concomitant]
     Indication: PRODUCT USED FOR UNKNOWN INDICATION
     Route: 048
  10. SYNTHROID [Concomitant]
     Indication: PRODUCT USED FOR UNKNOWN INDICATION
     Route: 048
  11. ANDROGEL [Concomitant]
     Indication: BLOOD TESTOSTERONE DECREASED
     Dosage: 1.25 GM/ACT
     Dates: start: 201204
  12. ANDROGEL [Concomitant]
     Dates: start: 201210
  13. EES                                /00020904/ [Concomitant]
     Indication: PRODUCT USED FOR UNKNOWN INDICATION
     Dosage: 200 MG/5ML
     Route: 048
  14. T4 [Concomitant]
     Indication: PRODUCT USED FOR UNKNOWN INDICATION

REACTIONS (4)
  - Colitis [Unknown]
  - Abdominal distension [Recovered/Resolved]
  - Dehydration [Recovered/Resolved]
  - Tendon disorder [Unknown]
